FAERS Safety Report 9892003 (Version 1)
Quarter: 2014Q1

REPORT INFORMATION
  Report Type: Spontaneous
  Country: US (occurrence: US)
  Receive Date: 20140212
  Receipt Date: 20140212
  Transmission Date: 20141002
  Serious: No
  Sender: FDA-Public Use
  Company Number: US-BAYER-2014-021309

PATIENT
  Sex: 0

DRUGS (2)
  1. ALEVE CAPLET [Suspect]
     Indication: BACK PAIN
     Dosage: 4 DF, UNK
  2. PARACETAMOL [Concomitant]
     Dosage: 6 DF, UNK

REACTIONS (2)
  - Drug ineffective [None]
  - Extra dose administered [None]
